FAERS Safety Report 4479795-7 (Version None)
Quarter: 2004Q3

REPORT INFORMATION
  Report Type: 
  Country: None (occurrence: None)
  Receive Date: 20040923
  Receipt Date: 20040617
  Transmission Date: 20050211
  Serious: No
  Sender: FDA-Public Use
  Company Number: USA040363080

PATIENT
  Age: 58 Year
  Sex: Female
  Weight: 61 kg

DRUGS (10)
  1. FORTEO [Suspect]
     Indication: OSTEOPOROSIS
     Dosage: 20 UG DAY
     Dates: start: 20040317, end: 20040610
  2. MIACALCIN [Concomitant]
  3. FOSAMAX [Concomitant]
  4. VOLTAREN [Concomitant]
  5. SOMA [Concomitant]
  6. TAGAMET [Concomitant]
  7. ESTROGEN NOS [Concomitant]
  8. CLARINEX [Concomitant]
  9. ATROVENT [Concomitant]
  10. CALCIUM [Concomitant]

REACTIONS (7)
  - ANXIETY [None]
  - HEADACHE [None]
  - INJECTION SITE HAEMORRHAGE [None]
  - INSOMNIA [None]
  - MUSCLE CONTRACTIONS INVOLUNTARY [None]
  - MUSCLE CRAMP [None]
  - PAIN [None]
